FAERS Safety Report 8586681 (Version 4)
Quarter: 2013Q2

REPORT INFORMATION
  Report Type: Spontaneous
  Country: US (occurrence: US)
  Receive Date: 20120530
  Receipt Date: 20130605
  Transmission Date: 20140414
  Serious: No
  Sender: FDA-Public Use
  Company Number: US-ASTRAZENECA-2012SE27382

PATIENT
  Age: 72 Year
  Sex: Female

DRUGS (3)
  1. NEXIUM [Suspect]
     Indication: HYPERCHLORHYDRIA
     Dosage: ONCE PER DAY
     Route: 048
  2. NEXIUM [Suspect]
     Indication: HYPERCHLORHYDRIA
     Route: 048
  3. PREVACID [Concomitant]

REACTIONS (10)
  - Gastrooesophageal reflux disease [Unknown]
  - Dysphonia [Unknown]
  - Pain [Unknown]
  - Fibromyalgia [Unknown]
  - Osteoarthritis [Unknown]
  - Regurgitation [Unknown]
  - Retching [Unknown]
  - Vomiting [Unknown]
  - Intentional drug misuse [Unknown]
  - Drug dose omission [Unknown]
